FAERS Safety Report 11646562 (Version 1)
Quarter: 2015Q4

REPORT INFORMATION
  Report Type: Spontaneous
  Country: US (occurrence: US)
  Receive Date: 20151020
  Receipt Date: 20151020
  Transmission Date: 20160304
  Serious: No
  Sender: FDA-Public Use
  Company Number: US-ROCHE-1622494

PATIENT
  Age: 77 Year
  Sex: Male

DRUGS (7)
  1. ASPIRIN. [Concomitant]
     Active Substance: ASPIRIN
  2. BUMETANIDE. [Concomitant]
     Active Substance: BUMETANIDE
  3. GLIMEPIRIDE. [Concomitant]
     Active Substance: GLIMEPIRIDE
  4. ESBRIET [Suspect]
     Active Substance: PIRFENIDONE
     Indication: IDIOPATHIC PULMONARY FIBROSIS
     Dosage: 3 CAPS, 3 X DAILY
     Route: 048
     Dates: start: 20150430
  5. ATORVASTATIN [Concomitant]
     Active Substance: ATORVASTATIN
  6. FLUCONAZOLE. [Concomitant]
     Active Substance: FLUCONAZOLE
  7. TRICOR [Concomitant]
     Active Substance: FENOFIBRATE

REACTIONS (2)
  - Asthenia [Unknown]
  - Drug dose omission [Unknown]
